FAERS Safety Report 11965985 (Version 1)
Quarter: 2016Q1

REPORT INFORMATION
  Report Type: Spontaneous
  Country: DE (occurrence: DE)
  Receive Date: 20160127
  Receipt Date: 20160127
  Transmission Date: 20160526
  Serious: Yes (Disabling)
  Sender: FDA-Public Use
  Company Number: DE-SA-2016SA014041

PATIENT
  Age: 14 Year
  Sex: Female

DRUGS (1)
  1. MYOZYME [Suspect]
     Active Substance: ALGLUCOSIDASE ALFA
     Indication: GLYCOGEN STORAGE DISEASE TYPE II
     Route: 041

REACTIONS (6)
  - Muscular weakness [Unknown]
  - Scoliosis [Recovered/Resolved with Sequelae]
  - Disease progression [Unknown]
  - Lower limb fracture [Recovered/Resolved with Sequelae]
  - Fall [Unknown]
  - Wheelchair user [Unknown]
